FAERS Safety Report 10234285 (Version 1)
Quarter: 2014Q2

REPORT INFORMATION
  Report Type: Spontaneous
  Country: US (occurrence: US)
  Receive Date: 20140612
  Receipt Date: 20140612
  Transmission Date: 20141212
  Serious: Yes (Other)
  Sender: FDA-Public Use
  Company Number: US-GILEAD-2014-0105175

PATIENT
  Age: 68 Year
  Sex: Female

DRUGS (4)
  1. LETAIRIS [Suspect]
     Indication: COR PULMONALE CHRONIC
     Dosage: 10 MG, QD
     Route: 065
     Dates: start: 20110421
  2. REMODULIN [Concomitant]
  3. ADCIRCA [Concomitant]
  4. LASIX                              /00032601/ [Concomitant]

REACTIONS (3)
  - Scleroderma [Unknown]
  - Skin disorder [Unknown]
  - Rash pruritic [Unknown]
